FAERS Safety Report 12172432 (Version 1)
Quarter: 2016Q1

REPORT INFORMATION
  Report Type: Other
  Country: DE (occurrence: DE)
  Receive Date: 20160311
  Receipt Date: 20160311
  Transmission Date: 20160526
  Serious: Yes (Other)
  Sender: FDA-Public Use
  Company Number: DE-SHIRE-DE201602831

PATIENT
  Sex: Male
  Weight: 49 kg

DRUGS (2)
  1. REVESTIVE [Suspect]
     Active Substance: TEDUGLUTIDE
     Indication: SHORT-BOWEL SYNDROME
     Dosage: 0.25 ML, UNK
     Route: 058
     Dates: start: 20150221
  2. HUMIRA [Concomitant]
     Active Substance: ADALIMUMAB
     Indication: CROHN^S DISEASE
     Dosage: UNK, EVERY 14 DAYS
     Route: 065

REACTIONS (3)
  - Device related infection [Unknown]
  - Crohn^s disease [Unknown]
  - Weight decreased [Unknown]
